FAERS Safety Report 9938186 (Version 2)
Quarter: 2014Q1

REPORT INFORMATION
  Report Type: Report from Study
  Country: US (occurrence: US)
  Receive Date: 20140303
  Receipt Date: 20140303
  Transmission Date: 20141002
  Serious: No
  Sender: FDA-Public Use
  Company Number: US-ABBVIE-12P-163-0979164-00

PATIENT
  Sex: Female

DRUGS (19)
  1. HUMIRA [Suspect]
     Indication: CROHN^S DISEASE
     Dates: start: 20120820
  2. ESTRADIOL [Concomitant]
     Indication: VAGINAL DISORDER
     Dosage: DAILY
  3. ESTRADIOL [Concomitant]
     Indication: VAGINAL HAEMORRHAGE
  4. FUROSEMIDE [Concomitant]
     Indication: HYPERTENSION
     Dosage: DAILY
     Route: 048
  5. FUROSEMIDE [Concomitant]
     Indication: SWELLING
  6. BENAZEPRIL [Concomitant]
     Indication: BLOOD PRESSURE
     Dosage: DAILY
  7. PRAVASTATIN [Concomitant]
     Indication: BLOOD CHOLESTEROL
     Dosage: DAILY
  8. LORATADINE [Concomitant]
     Indication: BLOOD PRESSURE
     Dosage: DAILY
  9. OMEPRAZOLE [Concomitant]
     Indication: HIATUS HERNIA
     Dosage: DAILY
  10. FISH OIL [Concomitant]
     Indication: VITAMIN SUPPLEMENTATION
     Dosage: DAILY
  11. POTASSIUM CHLORIDE [Concomitant]
     Indication: DIURETIC THERAPY
     Dosage: DAILY
  12. AMLODIPINE [Concomitant]
     Indication: BLOOD PRESSURE
     Dosage: DAILY
  13. CHOLESTYRAMINE POWDER [Concomitant]
     Indication: DIARRHOEA
     Dosage: HARDLY EVER HAVE TO TAKE IT
  14. GLUCOSAMINE [Concomitant]
     Indication: ARTHRITIS
     Dosage: PER DAY
  15. ALPRAZOLAM [Concomitant]
     Indication: INSOMNIA
  16. LOMOTIL [Concomitant]
     Indication: PRODUCT USED FOR UNKNOWN INDICATION
     Dosage: IN CASE PATIENT NEEDS IT
  17. TRAMADOL [Concomitant]
     Indication: PAIN
     Dosage: AS NEEDED
  18. LAMICTAL [Concomitant]
     Indication: CONVULSION
  19. PROBIOTIC [Concomitant]
     Indication: PRODUCT USED FOR UNKNOWN INDICATION

REACTIONS (3)
  - Malaise [Unknown]
  - Frequent bowel movements [Unknown]
  - Asthenia [Not Recovered/Not Resolved]
